FAERS Safety Report 11444966 (Version 1)
Quarter: 2015Q3

REPORT INFORMATION
  Report Type: Spontaneous
  Country: US (occurrence: None)
  Receive Date: 20150831
  Receipt Date: 20150831
  Transmission Date: 20151125
  Serious: Yes (Other)
  Sender: FDA-Public Use
  Company Number: None

PATIENT
  Age: 9 Year
  Sex: Female
  Weight: 44.45 kg

DRUGS (4)
  1. SINGULAIR [Concomitant]
     Active Substance: MONTELUKAST SODIUM
  2. FLORENT [Concomitant]
     Active Substance: SACCHAROMYCES CEREVISIAE
  3. MONTELUKAST [Suspect]
     Active Substance: MONTELUKAST SODIUM
     Indication: ASTHMA
     Route: 048
     Dates: start: 20150227, end: 20150718
  4. BUDESONIDE. [Concomitant]
     Active Substance: BUDESONIDE

REACTIONS (12)
  - Constipation [None]
  - Panic attack [None]
  - Depression [None]
  - Abdominal pain upper [None]
  - Fear [None]
  - Hallucination [None]
  - Malaise [None]
  - Anxiety [None]
  - Headache [None]
  - Visual impairment [None]
  - Hallucination, auditory [None]
  - Tremor [None]

NARRATIVE: CASE EVENT DATE: 20150718
